FAERS Safety Report 4844641-6 (Version None)
Quarter: 2005Q4

REPORT INFORMATION
  Report Type: 
  Country: None (occurrence: None)
  Receive Date: 20051129
  Receipt Date: 20051114
  Transmission Date: 20060501
  Serious: Yes (Hospitalization)
  Sender: FDA-Public Use
  Company Number: GB200511000182

PATIENT
  Age: 34 Year
  Sex: Male

DRUGS (3)
  1. ZYPREXA [Suspect]
     Dosage: SEE IMAGE
     Dates: start: 20051113, end: 20051113
  2. ZYPREXA [Suspect]
     Dosage: SEE IMAGE
     Dates: start: 20040101
  3. MIRTAZAPINE [Concomitant]

REACTIONS (4)
  - INTENTIONAL OVERDOSE [None]
  - IRRITABILITY [None]
  - PRESCRIBED OVERDOSE [None]
  - SUICIDE ATTEMPT [None]
